FAERS Safety Report 7216130-5 (Version None)
Quarter: 2011Q1

REPORT INFORMATION
  Report Type: 
  Country: None (occurrence: None)
  Receive Date: 20110105
  Receipt Date: 20110105
  Transmission Date: 20110831
  Serious: Yes (Hospitalization)
  Sender: FDA-Public Use
  Company Number: None

PATIENT
  Sex: Male
  Weight: 78.0187 kg

DRUGS (16)
  1. RAD001 2.5 MG [Suspect]
     Indication: PROSTATE CANCER
     Dosage: 2.5MG PO
     Route: 048
     Dates: start: 20100707, end: 20110101
  2. ZOFRAN [Concomitant]
  3. SUDAFED 12 HOUR [Concomitant]
  4. ZOSYN [Concomitant]
  5. ADVIL [Concomitant]
  6. LUPRON [Concomitant]
  7. DECADRON [Concomitant]
  8. BEVACIZUMAB 15 MG/KG [Suspect]
     Indication: PROSTATE CANCER
     Dosage: 1486 MGIVBP
     Route: 042
     Dates: start: 20100706, end: 20101129
  9. MMX [Concomitant]
  10. TAXOTERE [Suspect]
     Indication: PROSTATE CANCER
     Dosage: 165MGIVBP
     Route: 042
     Dates: start: 20100706, end: 20101129
  11. VANCOMYCIN [Concomitant]
  12. LISINOPRIL [Concomitant]
  13. FLOMAX [Concomitant]
  14. LIPITOR [Concomitant]
  15. COMPAZINE [Concomitant]
  16. ZOMETA [Concomitant]

REACTIONS (4)
  - CONSTIPATION [None]
  - DIARRHOEA [None]
  - RECTAL HAEMORRHAGE [None]
  - PERIRECTAL ABSCESS [None]
